FAERS Safety Report 6623536-1 (Version None)
Quarter: 2010Q1

REPORT INFORMATION
  Report Type: 
  Country: None (occurrence: None)
  Receive Date: 20100305
  Receipt Date: 20100223
  Transmission Date: 20100710
  Serious: Yes (Death)
  Sender: FDA-Public Use
  Company Number: APP201000116

PATIENT
  Sex: Female

DRUGS (2)
  1. XYLOCAINE [Suspect]
     Indication: DRUG ABUSE
  2. COCAINE (COCAINE) [Suspect]
     Indication: DRUG ABUSE

REACTIONS (1)
  - OVERDOSE [None]
